FAERS Safety Report 5716570-7 (Version None)
Quarter: 2008Q2

REPORT INFORMATION
  Report Type: 
  Country: None (occurrence: None)
  Receive Date: 20080424
  Receipt Date: 20080421
  Transmission Date: 20081010
  Serious: Yes (Death, Other)
  Sender: FDA-Public Use
  Company Number: GB-SANOFI-SYNTHELABO-F01200701776

PATIENT

DRUGS (3)
  1. CETUXIMAB [Suspect]
     Route: 065
  2. CAPECITABINE [Suspect]
     Route: 065
  3. OXALIPLATIN [Suspect]
     Indication: COLORECTAL CANCER
     Route: 042

REACTIONS (6)
  - DEATH [None]
  - DIARRHOEA [None]
  - HYPERSENSITIVITY [None]
  - LETHARGY [None]
  - RASH [None]
  - VOMITING [None]
